FAERS Safety Report 11387427 (Version 1)
Quarter: 2015Q3

REPORT INFORMATION
  Report Type: Spontaneous
  Country: US (occurrence: None)
  Receive Date: 20150814
  Receipt Date: 20150814
  Transmission Date: 20151125
  Serious: No
  Sender: FDA-Public Use
  Company Number: None

PATIENT
  Age: 30 Year
  Sex: Male

DRUGS (1)
  1. EXTAVIA [Suspect]
     Active Substance: INTERFERON BETA-1B
     Indication: MULTIPLE SCLEROSIS
     Route: 058
     Dates: start: 20150720

REACTIONS (5)
  - Pain [None]
  - Injection site pain [None]
  - Nausea [None]
  - Acne [None]
  - Back pain [None]

NARRATIVE: CASE EVENT DATE: 20150812
